FAERS Safety Report 16762272 (Version 2)
Quarter: 2019Q4

REPORT INFORMATION
  Report Type: Report from Study
  Country: KR (occurrence: KR)
  Receive Date: 20190831
  Receipt Date: 20191002
  Transmission Date: 20200122
  Serious: Yes (Hospitalization, Other)
  Sender: FDA-Public Use
  Company Number: KR-BRISTOL-MYERS SQUIBB COMPANY-BMS-2019-081575

PATIENT
  Age: 71 Year
  Sex: Male
  Weight: 54 kg

DRUGS (2)
  1. ALESION BOEHRINGER [Concomitant]
     Indication: PRODUCT USED FOR UNKNOWN INDICATION
     Dosage: UNK
     Route: 065
  2. NIVOLUMAB [Suspect]
     Active Substance: NIVOLUMAB
     Indication: NON-SMALL CELL LUNG CANCER
     Dosage: 160 MILLIGRAM, Q2WK
     Route: 041
     Dates: start: 20171214, end: 20180426

REACTIONS (2)
  - Sepsis [Recovered/Resolved]
  - Diabetes mellitus [Recovered/Resolved with Sequelae]

NARRATIVE: CASE EVENT DATE: 20180316
